FAERS Safety Report 8381782-3 (Version None)
Quarter: 2012Q2

REPORT INFORMATION
  Report Type: 
  Country: None (occurrence: None)
  Receive Date: 20120427
  Receipt Date: 20120418
  Transmission Date: 20120825
  Serious: Yes (Life-Threatening, Hospitalization)
  Sender: FDA-Public Use
  Company Number: WSDF_00793

PATIENT
  Sex: Male

DRUGS (3)
  1. SOLU-CORTEF [Concomitant]
  2. WINRHO [Suspect]
     Indication: IDIOPATHIC THROMBOCYTOPENIC PURPURA
     Dosage: (50 ?G/KG INTRAVENOUS (NOT OTHERWISE SPECIFIED))
     Route: 042
     Dates: start: 20090119
  3. ACETAMINOPHEN [Concomitant]

REACTIONS (7)
  - HAEMOGLOBIN DECREASED [None]
  - CHEST PAIN [None]
  - CHILLS [None]
  - HYPERSENSITIVITY [None]
  - DYSPNOEA [None]
  - BLOOD PRESSURE DECREASED [None]
  - BLOOD BILIRUBIN INCREASED [None]
